FAERS Safety Report 13441252 (Version 1)
Quarter: 2017Q2

REPORT INFORMATION
  Report Type: Spontaneous
  Country: IE (occurrence: IE)
  Receive Date: 20170413
  Receipt Date: 20170413
  Transmission Date: 20170830
  Serious: Yes (Other)
  Sender: FDA-Public Use
  Company Number: IE-BAUSCH-BL-2017-008895

PATIENT
  Age: 37 Year
  Sex: Male

DRUGS (3)
  1. HYDROCORTISONE. [Suspect]
     Active Substance: HYDROCORTISONE
     Indication: COLITIS ULCERATIVE
     Route: 042
  2. 5-AMINOSALICYLIC ACID [Suspect]
     Active Substance: MESALAMINE
     Indication: COLITIS ULCERATIVE
     Route: 048
  3. INFLIXIMAB [Suspect]
     Active Substance: INFLIXIMAB
     Indication: COLITIS ULCERATIVE
     Route: 065

REACTIONS (1)
  - Drug ineffective [Unknown]
